FAERS Safety Report 6089783-5 (Version None)
Quarter: 2009Q1

REPORT INFORMATION
  Report Type: 
  Country: None (occurrence: None)
  Receive Date: 20090220
  Receipt Date: 20090206
  Transmission Date: 20090719
  Serious: Yes (Hospitalization)
  Sender: FDA-Public Use
  Company Number: 230349K09USA

PATIENT
  Age: 45 Year
  Sex: Female

DRUGS (6)
  1. REBIF [Suspect]
     Indication: MULTIPLE SCLEROSIS
     Dosage: 44 MCG, 3 IN 1 WEEKS, SUBCUTANEOUS
     Route: 058
     Dates: start: 20051023, end: 20090101
  2. OXYCODONE HCL [Concomitant]
  3. VICODIN [Concomitant]
  4. GABAPENTIN [Concomitant]
  5. WELLBUTRIN [Concomitant]
  6. TRAZODONE HCL [Concomitant]

REACTIONS (14)
  - ANXIETY [None]
  - CONDITION AGGRAVATED [None]
  - DEHYDRATION [None]
  - DEPRESSION [None]
  - HEADACHE [None]
  - INJECTION SITE ERYTHEMA [None]
  - MALAISE [None]
  - MICTURITION DISORDER [None]
  - MULTIPLE SCLEROSIS [None]
  - MUSCLE SPASMS [None]
  - NAUSEA [None]
  - SUICIDAL IDEATION [None]
  - VIRAL INFECTION [None]
  - VOMITING [None]
